FAERS Safety Report 24144173 (Version 2)
Quarter: 2024Q3

REPORT INFORMATION
  Report Type: Report from Study
  Country: CO (occurrence: CO)
  Receive Date: 20240727
  Receipt Date: 20240815
  Transmission Date: 20241016
  Serious: Yes (Hospitalization, Other)
  Sender: ABBVIE
  Company Number: CO-ABBVIE-5853252

PATIENT
  Age: 68 Year
  Sex: Male
  Weight: 55 kg

DRUGS (5)
  1. BOTOX [Suspect]
     Active Substance: ONABOTULINUMTOXINA
     Indication: Dystonia
     Dosage: TIME INTERVAL: AS NECESSARY: FREQUENCY: EVERY FOUR MONTH ?FORM STRENGTH: 100 UNIT
     Route: 030
     Dates: start: 20220524, end: 20220524
  2. BOTOX [Suspect]
     Active Substance: ONABOTULINUMTOXINA
     Indication: Dystonia
     Dosage: TIME INTERVAL: AS NECESSARY: FREQUENCY: EVERY FOUR MONTH ?FORM STRENGTH: 100 UNIT
     Route: 030
     Dates: start: 20240305, end: 20240305
  3. Tamsulosina clorhidrato [Concomitant]
     Indication: Urinary tract infection
     Dosage: 0.4 MILLIGRAM
     Route: 048
     Dates: start: 202406, end: 202406
  4. TAMSULOSIN [Concomitant]
     Active Substance: TAMSULOSIN
     Indication: Urinary tract infection
     Route: 048
     Dates: start: 202406, end: 202406
  5. DUTASTERIDE\TAMSULOSIN HYDROCHLORIDE [Concomitant]
     Active Substance: DUTASTERIDE\TAMSULOSIN HYDROCHLORIDE
     Indication: Urinary tract infection
     Route: 048
     Dates: start: 202406, end: 202406

REACTIONS (8)
  - Mucous stools [Unknown]
  - Dengue fever [Unknown]
  - Faecaloma [Not Recovered/Not Resolved]
  - Respiratory distress [Unknown]
  - Pneumonia [Recovering/Resolving]
  - Urine output decreased [Unknown]
  - Stress [Unknown]
  - Urinary tract infection [Recovering/Resolving]

NARRATIVE: CASE EVENT DATE: 20240601
